FAERS Safety Report 24718288 (Version 3)
Quarter: 2024Q4

REPORT INFORMATION
  Report Type: Spontaneous
  Country: US (occurrence: US)
  Receive Date: 20241210
  Receipt Date: 20241230
  Transmission Date: 20250115
  Serious: No
  Sender: AMGEN
  Company Number: US-AMGEN-USASP2024241619

PATIENT
  Age: 86 Year
  Sex: Female

DRUGS (2)
  1. REPATHA [Suspect]
     Active Substance: EVOLOCUMAB
     Indication: Product used for unknown indication
     Dosage: 140 MILLIGRAM, Q2WK
     Route: 058
  2. REPATHA [Suspect]
     Active Substance: EVOLOCUMAB
     Dosage: UNK
     Route: 065

REACTIONS (4)
  - Injection site bruising [Unknown]
  - Injection site indentation [Unknown]
  - Device difficult to use [Unknown]
  - Drug dose omission by device [Unknown]

NARRATIVE: CASE EVENT DATE: 20241205
